FAERS Safety Report 9178713 (Version 1)
Quarter: 2012Q4

REPORT INFORMATION
  Report Type: 
  Country: US (occurrence: US)
  Receive Date: 20121029
  Receipt Date: 20121029
  Transmission Date: 20130627
  Serious: No
  Sender: FDA-Public Use
  Company Number: US-PFIZER INC-2012267101

PATIENT
  Age: 58 Year
  Sex: Male
  Weight: 70.3 kg

DRUGS (3)
  1. CELEBREX [Suspect]
     Indication: ARTHRITIS
     Dosage: 200 mg, 1x/day
     Route: 048
     Dates: start: 20121020
  2. HUMIRA [Concomitant]
     Dosage: UNK
  3. METHOTREXATE [Concomitant]
     Dosage: UNK

REACTIONS (1)
  - Faeces discoloured [Not Recovered/Not Resolved]
